FAERS Safety Report 7826000-7 (Version None)
Quarter: 2011Q4

REPORT INFORMATION
  Report Type: 
  Country: None (occurrence: None)
  Receive Date: 20111019
  Receipt Date: 20111010
  Transmission Date: 20120403
  Serious: Yes (Hospitalization, Other)
  Sender: FDA-Public Use
  Company Number: US-ASTRAZENECA-2011SE49203

PATIENT
  Age: 64 Year
  Sex: Female
  Weight: 72.6 kg

DRUGS (6)
  1. CRESTOR [Suspect]
     Route: 048
     Dates: start: 20100501, end: 20101105
  2. LIVALO [Concomitant]
     Indication: LIPIDS ABNORMAL
     Route: 048
     Dates: start: 20101025, end: 20101105
  3. ATENOLOL [Concomitant]
  4. CRESTOR [Suspect]
     Indication: LIPIDS ABNORMAL
     Route: 048
     Dates: start: 20070301
  5. JANUVIA [Concomitant]
  6. CARVEDILOL [Concomitant]

REACTIONS (1)
  - CEREBRAL INFARCTION [None]
